FAERS Safety Report 10820104 (Version 3)
Quarter: 2015Q2

REPORT INFORMATION
  Report Type: Spontaneous
  Country: JP (occurrence: None)
  Receive Date: 20150213
  Receipt Date: 20150413
  Transmission Date: 20150821
  Serious: Yes (Life-Threatening)
  Sender: FDA-Public Use
  Company Number: 2015BCR00031

PATIENT
  Age: 82 Year
  Sex: Female

DRUGS (8)
  1. ACINON [Suspect]
     Active Substance: NIZATIDINE
     Indication: HYPERTENSION
     Route: 048
     Dates: end: 20150116
  2. KAKKONTO (KAKKONTO) [Suspect]
     Active Substance: HERBALS
     Indication: NASOPHARYNGITIS
     Dates: start: 20150115, end: 20150116
  3. CALBLOCK [Suspect]
     Active Substance: AZELNIDIPINE
     Indication: HYPERTENSION
     Route: 048
     Dates: end: 20150116
  4. BAYASPIRIN (ASPIRIN) [Suspect]
     Active Substance: ASPIRIN
     Indication: CEREBRAL INFARCTION
     Route: 048
     Dates: end: 20150223
  5. TAKEPRON (LANSOPRAZOLE) [Suspect]
     Active Substance: LANSOPRAZOLE
     Indication: GASTROINTESTINAL HAEMORRHAGE
     Route: 048
  6. RAPIACTA [Suspect]
     Active Substance: PERAMIVIR
     Indication: INFLUENZA
     Route: 042
     Dates: start: 20150115, end: 20150115
  7. URSO [Suspect]
     Active Substance: URSODIOL
     Indication: POST CHOLECYSTECTOMY SYNDROME
     Route: 048
  8. WARFARIN [Suspect]
     Active Substance: WARFARIN
     Indication: ATRIAL FIBRILLATION
     Route: 048

REACTIONS (3)
  - Torsade de pointes [None]
  - Electrocardiogram QT prolonged [None]
  - Syncope [None]

NARRATIVE: CASE EVENT DATE: 20150116
